FAERS Safety Report 4976511-7 (Version None)
Quarter: 2006Q2

REPORT INFORMATION
  Report Type: 
  Country: None (occurrence: None)
  Receive Date: 20060419
  Receipt Date: 20060410
  Transmission Date: 20061013
  Serious: Yes (Hospitalization)
  Sender: FDA-Public Use
  Company Number: US-KINGPHARMUSA00001-K200600452

PATIENT
  Age: 83 Year
  Sex: Male

DRUGS (6)
  1. ALTACE [Suspect]
     Dosage: 1.25 MG, QD
     Route: 048
     Dates: end: 20060203
  2. LASILIX [Suspect]
     Dosage: 60 MG, SINGLE
     Route: 048
     Dates: start: 20060201, end: 20060201
  3. LASILIX [Suspect]
     Dosage: 120 MG, SINGLE
     Route: 048
     Dates: start: 20060202, end: 20060202
  4. KARDEGIC /FRA/ [Concomitant]
     Dosage: 75 MG, QD
     Route: 048
  5. CRESTOR [Concomitant]
     Dosage: 20 MG, QD
     Route: 048
  6. XENETIX [Suspect]
     Dosage: 200 ML, SINGLE
     Route: 042
     Dates: start: 20060202, end: 20060202

REACTIONS (3)
  - ACUTE PULMONARY OEDEMA [None]
  - DEHYDRATION [None]
  - RENAL FAILURE ACUTE [None]
